FAERS Safety Report 9720698 (Version 3)
Quarter: 2014Q1

REPORT INFORMATION
  Report Type: Report from Study
  Country: US (occurrence: US)
  Receive Date: 20131129
  Receipt Date: 20140326
  Transmission Date: 20141002
  Serious: Yes (Other)
  Sender: FDA-Public Use
  Company Number: PHEH2013US024746

PATIENT
  Age: 64 Year
  Sex: Female

DRUGS (5)
  1. AFINITOR [Suspect]
     Indication: BREAST CANCER
     Dosage: 10 MG, QD
     Route: 048
     Dates: start: 20130701, end: 20131119
  2. EXEMESTANE [Concomitant]
     Indication: BREAST CANCER
     Dosage: 25 MG
     Route: 048
     Dates: start: 20130701, end: 20131119
  3. AZATHIOPRINE [Concomitant]
     Dosage: 50 MG, TID
     Route: 048
  4. SULFASALAZINE [Concomitant]
     Dosage: 1000 MG, BID
     Route: 048
  5. PLAQUENIL [Concomitant]
     Dosage: 200 MG, BID
     Route: 048

REACTIONS (7)
  - Acne [Recovered/Resolved]
  - Thrombosis [Recovering/Resolving]
  - Swelling [Recovering/Resolving]
  - Pain [Recovering/Resolving]
  - Blood electrolytes decreased [Recovered/Resolved]
  - Fatigue [Recovering/Resolving]
  - Stomatitis [Recovered/Resolved]
